FAERS Safety Report 21637065 (Version 1)
Quarter: 2022Q4

REPORT INFORMATION
  Report Type: Spontaneous
  Country: AU (occurrence: AU)
  Receive Date: 20221124
  Receipt Date: 20221124
  Transmission Date: 20230112
  Serious: Yes (Disabling)
  Sender: FDA-Public Use
  Company Number: None

PATIENT

DRUGS (15)
  1. NUCYNTA [Suspect]
     Active Substance: TAPENTADOL HYDROCHLORIDE
     Indication: Migraine
     Dosage: 50 MILLIGRAM, AS NEEDED
     Route: 065
     Dates: start: 2018
  2. ZOLMITRIPTAN [Suspect]
     Active Substance: ZOLMITRIPTAN
     Indication: Migraine
     Dosage: 2.5 MILLIGRAM, AS NEEDED
     Dates: start: 2019
  3. QUETIAPINE [Suspect]
     Active Substance: QUETIAPINE
     Indication: Anxiety
     Dosage: 25 MG, 3 TIMES NIGHTLY
     Dates: start: 201811
  4. AMITRIPTYLINE [Suspect]
     Active Substance: AMITRIPTYLINE
     Indication: Migraine
     Dosage: 25 MILLIGRAM, 1/DAY, UNKNOWN
     Dates: start: 20220120
  5. AMITRIPTYLINE [Suspect]
     Active Substance: AMITRIPTYLINE
     Indication: Pain
  6. BUTYLSCOPOLAMINE BROMIDE [Suspect]
     Active Substance: BUTYLSCOPOLAMINE BROMIDE
     Indication: Irritable bowel syndrome
     Dosage: UNK, UNKNOWN
     Dates: start: 2011
  7. CITALOPRAM [Suspect]
     Active Substance: CITALOPRAM HYDROBROMIDE
     Indication: Depression
     Dosage: 40 MILLIGRAM, 1/DAY,
     Route: 048
     Dates: start: 201811
  8. SIMETHICONE (DIMETHICONE) [Suspect]
     Active Substance: DIMETHICONE
     Indication: Irritable bowel syndrome
     Dosage: UNK UNK,
     Dates: start: 2011
  9. ESTRADIOL [Suspect]
     Active Substance: ESTRADIOL
     Indication: Menopause
     Dosage: 100 MICROGRAM, ROTATION EVERY 3 DAYS
     Dates: start: 20191010
  10. EMGALITY [Suspect]
     Active Substance: GALCANEZUMAB-GNLM
     Indication: Migraine
     Dosage: UNK, UNKNOWN
     Dates: start: 202106
  11. ONDANSETRON [Suspect]
     Active Substance: ONDANSETRON
     Indication: Migraine
     Dosage: 8 MILLIGRAM, AS NEEDED
     Dates: start: 2019
  12. ONDANSETRON [Suspect]
     Active Substance: ONDANSETRON
     Indication: Irritable bowel syndrome
  13. PREGABALIN [Suspect]
     Active Substance: PREGABALIN
     Indication: Meralgia paraesthetica
     Dosage: 150 MILLIGRAM, 1/DAY,
     Dates: start: 202107
  14. PROMETRIUM [Suspect]
     Active Substance: PROGESTERONE
     Indication: Menopause
     Dosage: 100 MILLIGRAM, 1/DAY
     Route: 067
     Dates: start: 20191028
  15. RABEPRAZOLE [Suspect]
     Active Substance: RABEPRAZOLE
     Indication: Gastrooesophageal reflux disease
     Dosage: 0.5 DOSAGE FORM, QD

REACTIONS (4)
  - Migraine [Unknown]
  - Breast tenderness [Unknown]
  - Hyperhidrosis [Unknown]
  - Hot flush [Unknown]

NARRATIVE: CASE EVENT DATE: 20220101
